FAERS Safety Report 25747695 (Version 1)
Quarter: 2025Q3

REPORT INFORMATION
  Report Type: Spontaneous
  Country: BR (occurrence: BR)
  Receive Date: 20250901
  Receipt Date: 20250901
  Transmission Date: 20251020
  Serious: Yes (Life-Threatening, Other)
  Sender: TAKEDA
  Company Number: BR-TAKEDA-2025TUS076334

PATIENT
  Sex: Female
  Weight: 80 kg

DRUGS (6)
  1. DEXILANT [Suspect]
     Active Substance: DEXLANSOPRAZOLE
     Indication: Hiatus hernia
  2. DEXILANT [Suspect]
     Active Substance: DEXLANSOPRAZOLE
     Indication: Gastritis erosive
  3. BUDESONIDE\FORMOTEROL FUMARATE [Suspect]
     Active Substance: BUDESONIDE\FORMOTEROL FUMARATE
     Indication: Asthma
  4. CORTISONE [Suspect]
     Active Substance: CORTISONE
     Indication: Product used for unknown indication
  5. EUTHYROX [Concomitant]
     Active Substance: LEVOTHYROXINE SODIUM
     Indication: Osteoporosis
     Dosage: 100 MILLIGRAM, QD
  6. EUTHYROX [Concomitant]
     Active Substance: LEVOTHYROXINE SODIUM
     Indication: Arthritis

REACTIONS (29)
  - Near death experience [Recovering/Resolving]
  - Drug dependence [Unknown]
  - Angina pectoris [Recovering/Resolving]
  - Dysgeusia [Recovering/Resolving]
  - Miliaria [Recovering/Resolving]
  - Swelling face [Recovering/Resolving]
  - Heart rate abnormal [Recovering/Resolving]
  - Drug ineffective [Unknown]
  - Product use in unapproved indication [Unknown]
  - Limb discomfort [Recovering/Resolving]
  - Malaise [Unknown]
  - Retching [Recovering/Resolving]
  - Feeling abnormal [Recovering/Resolving]
  - Pain [Recovering/Resolving]
  - Dizziness [Recovering/Resolving]
  - Throat tightness [Recovering/Resolving]
  - Dyspnoea [Recovering/Resolving]
  - Chest pain [Recovering/Resolving]
  - Palpitations [Recovering/Resolving]
  - Ear pain [Recovering/Resolving]
  - Tremor [Recovering/Resolving]
  - Abdominal pain upper [Recovering/Resolving]
  - Dry mouth [Recovering/Resolving]
  - Cough [Unknown]
  - Vomiting [Recovering/Resolving]
  - Nausea [Recovering/Resolving]
  - Diarrhoea [Recovering/Resolving]
  - Abdominal pain [Recovering/Resolving]
  - Flatulence [Recovering/Resolving]
